FAERS Safety Report 7527760-5 (Version None)
Quarter: 2011Q2

REPORT INFORMATION
  Report Type: 
  Country: None (occurrence: None)
  Receive Date: 20110527
  Receipt Date: 20110516
  Transmission Date: 20111010
  Serious: Yes (Other)
  Sender: FDA-Public Use
  Company Number: 2011P1006747

PATIENT
  Age: 43 Year
  Sex: Female

DRUGS (1)
  1. FENTANYL [Suspect]
     Indication: PAIN
     Dates: end: 20110329

REACTIONS (2)
  - SKIN REACTION [None]
  - THERMAL BURN [None]
